FAERS Safety Report 8913934 (Version 1)
Quarter: 2012Q4

REPORT INFORMATION
  Report Type: Spontaneous
  Country: US (occurrence: None)
  Receive Date: 20121115
  Receipt Date: 20121115
  Transmission Date: 20130627
  Serious: Yes (Hospitalization)
  Sender: FDA-Public Use
  Company Number: None

PATIENT
  Age: 51 Year
  Sex: Female
  Weight: 101.8 kg

DRUGS (1)
  1. FLUOXETINE [Suspect]
     Indication: ANXIETY
     Dates: start: 20120922, end: 20121009

REACTIONS (5)
  - Anxiety [None]
  - Tachyphrenia [None]
  - Tremor [None]
  - Tremor [None]
  - Hyperhidrosis [None]
